FAERS Safety Report 13085877 (Version 1)
Quarter: 2017Q1

REPORT INFORMATION
  Report Type: Report from Study
  Country: US (occurrence: US)
  Receive Date: 20170104
  Receipt Date: 20170104
  Transmission Date: 20170428
  Serious: Yes (Other)
  Sender: FDA-Public Use
  Company Number: US-GILEAD-2016-0251316

PATIENT
  Age: 60 Year
  Sex: Female

DRUGS (3)
  1. LEDIPASVIR/SOFOSBUVIR [Suspect]
     Active Substance: LEDIPASVIR\SOFOSBUVIR
     Indication: CHRONIC HEPATITIS C
     Dosage: 1 DF, QD
     Route: 048
     Dates: start: 20161104
  2. LYRICA [Suspect]
     Active Substance: PREGABALIN
     Indication: PRODUCT USED FOR UNKNOWN INDICATION
     Route: 065
  3. 9-TETRAHYDROCANNABINOL [Concomitant]
     Active Substance: DRONABINOL
     Route: 061

REACTIONS (7)
  - Unevaluable event [Unknown]
  - Dizziness [Unknown]
  - Unevaluable event [Recovered/Resolved]
  - Disturbance in attention [Unknown]
  - Diarrhoea [Unknown]
  - Stress [Unknown]
  - Hypothermia [Recovered/Resolved]
